FAERS Safety Report 13925251 (Version 1)
Quarter: 2017Q3

REPORT INFORMATION
  Report Type: Spontaneous
  Country: US (occurrence: US)
  Receive Date: 20170831
  Receipt Date: 20170831
  Transmission Date: 20171127
  Serious: Yes (Other)
  Sender: FDA-Public Use
  Company Number: US-JNJFOC-20170823277

PATIENT
  Sex: Female
  Weight: 63.96 kg

DRUGS (8)
  1. VITAMIN E [Concomitant]
     Active Substance: .ALPHA.-TOCOPHEROL
     Route: 065
  2. VITAMIN D [Concomitant]
     Active Substance: CHOLECALCIFEROL
     Route: 065
  3. SIMVASTATIN. [Concomitant]
     Active Substance: SIMVASTATIN
     Route: 065
  4. METFORMIN [Concomitant]
     Active Substance: METFORMIN HYDROCHLORIDE
     Indication: DIABETES MELLITUS
     Route: 065
  5. AMLODIPINE [Concomitant]
     Active Substance: AMLODIPINE BESYLATE
     Route: 065
  6. FISH OIL [Concomitant]
     Active Substance: FISH OIL
     Route: 065
  7. XARELTO [Suspect]
     Active Substance: RIVAROXABAN
     Indication: ARRHYTHMIA
     Route: 048
     Dates: start: 2014
  8. XARELTO [Suspect]
     Active Substance: RIVAROXABAN
     Indication: CEREBROVASCULAR ACCIDENT
     Route: 048
     Dates: start: 2014

REACTIONS (3)
  - Underdose [Unknown]
  - Pharyngeal neoplasm [Recovered/Resolved]
  - Wrong technique in product usage process [Unknown]

NARRATIVE: CASE EVENT DATE: 2017
